FAERS Safety Report 10215898 (Version 1)
Quarter: 2014Q2

REPORT INFORMATION
  Report Type: Spontaneous
  Country: US (occurrence: None)
  Receive Date: 20140602
  Receipt Date: 20140602
  Transmission Date: 20141212
  Serious: Yes (Hospitalization)
  Sender: FDA-Public Use
  Company Number: LEVE20140009

PATIENT
  Age: 17 Year
  Sex: Female

DRUGS (1)
  1. LEVETIRACETAM TABLETS (LEVETIRACETAM) (UNKNOWN) (LEVETIRACETAM) [Suspect]
     Indication: CONVULSION
     Dosage: UNK, UNK, UNKNOWN

REACTIONS (4)
  - Eosinophilic cystitis [None]
  - Tubulointerstitial nephritis [None]
  - Hydronephrosis [None]
  - Fatigue [None]
